FAERS Safety Report 19891696 (Version 1)
Quarter: 2021Q3

REPORT INFORMATION
  Report Type: Report from Study
  Country: BE (occurrence: BE)
  Receive Date: 20210928
  Receipt Date: 20210928
  Transmission Date: 20211014
  Serious: Yes (Other)
  Sender: FDA-Public Use
  Company Number: BE-MYLANLABS-2021M1065362

PATIENT
  Age: 71 Year
  Sex: Male

DRUGS (1)
  1. ABIRATERONE. [Suspect]
     Active Substance: ABIRATERONE ACETATE
     Indication: PROSTATE CANCER
     Dosage: 1000 MILLIGRAM
     Route: 048
     Dates: start: 20181102

REACTIONS (3)
  - Emphysema [Unknown]
  - Oedema peripheral [Unknown]
  - Chronic obstructive pulmonary disease [Unknown]
